FAERS Safety Report 12834449 (Version 3)
Quarter: 2016Q4

REPORT INFORMATION
  Report Type: Report from Study
  Country: ZA (occurrence: ZA)
  Receive Date: 20161010
  Receipt Date: 20161019
  Transmission Date: 20170207
  Serious: Yes (Death)
  Sender: FDA-Public Use
  Company Number: ZA-B.I. PHARMACEUTICALS,INC./RIDGEFIELD-2016-BI-61632BI

PATIENT
  Age: 73 Year
  Sex: Female
  Weight: 73 kg

DRUGS (9)
  1. NOVOMIX [Concomitant]
     Active Substance: INSULIN ASPART
     Indication: DIABETES MELLITUS
     Dosage: 30/70 INSULIN
     Route: 058
     Dates: start: 20140605
  2. CITRAZ [Concomitant]
     Indication: DEPRESSION
     Route: 048
     Dates: start: 201201
  3. DORMONOCT [Concomitant]
     Active Substance: LOPRAZOLAM
     Indication: INSOMNIA
     Route: 048
     Dates: start: 20150503
  4. BLINDED BI 1356 [Suspect]
     Active Substance: LINAGLIPTIN
     Indication: TYPE 2 DIABETES MELLITUS
     Route: 048
     Dates: start: 20120221
  5. FEDALOC [Concomitant]
     Indication: HYPERTENSION
     Dosage: SR
     Route: 048
     Dates: start: 201201
  6. ASPAVOR [Concomitant]
     Active Substance: ATORVASTATIN
     Indication: HYPERCHOLESTEROLAEMIA
     Route: 048
     Dates: start: 200912
  7. BAYER ASPIRIN [Concomitant]
     Active Substance: ASPIRIN
     Indication: ANTICOAGULANT THERAPY
     Route: 048
     Dates: start: 200906
  8. URBANOL [Concomitant]
     Active Substance: CLOBAZAM
     Indication: DEPRESSION
     Route: 048
     Dates: start: 200912
  9. DORMONOCT [Concomitant]
     Active Substance: LOPRAZOLAM
     Indication: HYPERTENSION
     Route: 048
     Dates: start: 200912

REACTIONS (1)
  - Pneumonia [Fatal]

NARRATIVE: CASE EVENT DATE: 20160911
